FAERS Safety Report 15777454 (Version 1)
Quarter: 2018Q4

REPORT INFORMATION
  Report Type: Report from Study
  Country: US (occurrence: US)
  Receive Date: 20181231
  Receipt Date: 20181231
  Transmission Date: 20190205
  Serious: No
  Sender: FDA-Public Use
  Company Number: US-CLOVIS ONCOLOGY-CLO-2018-001548

PATIENT
  Sex: Female

DRUGS (2)
  1. RUBRACA [Suspect]
     Active Substance: RUCAPARIB CAMSYLATE
     Indication: OVARIAN CANCER
     Dosage: 300 MG, BID
     Route: 048
     Dates: start: 20181025
  2. RUBRACA [Suspect]
     Active Substance: RUCAPARIB CAMSYLATE
     Dosage: 600 MG, BID
     Route: 048
     Dates: start: 20181025

REACTIONS (6)
  - Accidental underdose [Unknown]
  - Fatigue [Not Recovered/Not Resolved]
  - Liver function test increased [Not Recovered/Not Resolved]
  - Product dose omission [Unknown]
  - Nausea [Unknown]
  - Dysgeusia [Unknown]

NARRATIVE: CASE EVENT DATE: 2018
